FAERS Safety Report 4881190-3 (Version None)
Quarter: 2006Q1

REPORT INFORMATION
  Report Type: 
  Country: None (occurrence: None)
  Receive Date: 20060111
  Receipt Date: 20060111
  Transmission Date: 20060701
  Serious: Yes (Disabling)
  Sender: FDA-Public Use
  Company Number: None

PATIENT
  Age: 98 Year
  Sex: Female
  Weight: 50.8029 kg

DRUGS (2)
  1. CEFEPIME, ELAN LABORATORIES [Suspect]
     Indication: PSEUDOMONAS INFECTION
     Dosage: 2 GM BID IV
     Route: 042
     Dates: start: 20051109, end: 20051111
  2. CEFEPIME, ELAN LABORATORIES [Suspect]
     Indication: URINARY TRACT INFECTION
     Dosage: 2 GM BID IV
     Route: 042
     Dates: start: 20051109, end: 20051111

REACTIONS (6)
  - AGITATION [None]
  - COMA [None]
  - CONFUSIONAL STATE [None]
  - COORDINATION ABNORMAL [None]
  - HALLUCINATION [None]
  - VOMITING [None]
